FAERS Safety Report 14527679 (Version 1)
Quarter: 2018Q1

REPORT INFORMATION
  Report Type: Spontaneous
  Country: TW (occurrence: TW)
  Receive Date: 20180213
  Receipt Date: 20180213
  Transmission Date: 20180509
  Serious: Yes (Hospitalization, Other)
  Sender: FDA-Public Use
  Company Number: TW-EDENBRIDGE PHARMACEUTICALS, LLC-TW-2018EDE000022

PATIENT
  Age: 66 Year
  Sex: Male

DRUGS (2)
  1. PREDNISOLONE SODIUM PHOSPHATE. [Suspect]
     Active Substance: PREDNISOLONE SODIUM PHOSPHATE
     Dosage: 10 MG, QD
  2. PREDNISOLONE SODIUM PHOSPHATE. [Suspect]
     Active Substance: PREDNISOLONE SODIUM PHOSPHATE
     Indication: ACUTE FEBRILE NEUTROPHILIC DERMATOSIS
     Dosage: 30 MG, QD

REACTIONS (4)
  - Nocardiosis [Unknown]
  - Sepsis [Unknown]
  - Pulmonary tuberculosis [Unknown]
  - Abscess [Recovered/Resolved]
